FAERS Safety Report 17515540 (Version 1)
Quarter: 2020Q1

REPORT INFORMATION
  Report Type: Spontaneous
  Country: US (occurrence: US)
  Receive Date: 20200309
  Receipt Date: 20200309
  Transmission Date: 20200409
  Serious: No
  Sender: FDA-Public Use
  Company Number: US-MYLANLABS-2020M1021863

PATIENT
  Sex: Female

DRUGS (1)
  1. LIDOCAINE PATCH [Suspect]
     Active Substance: LIDOCAINE
     Indication: PAIN IN EXTREMITY
     Dosage: 1 UNK
     Route: 003
     Dates: start: 20200218

REACTIONS (4)
  - Drug ineffective for unapproved indication [Unknown]
  - Wrong technique in product usage process [Recovering/Resolving]
  - Product quality issue [Unknown]
  - Product adhesion issue [Unknown]
